FAERS Safety Report 7906492-5 (Version None)
Quarter: 2011Q4

REPORT INFORMATION
  Report Type: 
  Country: None (occurrence: None)
  Receive Date: 20111110
  Receipt Date: 20111101
  Transmission Date: 20120403
  Serious: Yes (Hospitalization)
  Sender: FDA-Public Use
  Company Number: US-JNJFOC-20110901904

PATIENT
  Sex: Female
  Weight: 63.2 kg

DRUGS (3)
  1. ANTIBIOTICS [Concomitant]
     Indication: INFLAMMATORY BOWEL DISEASE
  2. REMICADE [Suspect]
     Indication: CROHN'S DISEASE
     Route: 042
     Dates: start: 20081202, end: 20090714
  3. HUMIRA [Concomitant]
     Dates: start: 20090903

REACTIONS (1)
  - CROHN'S DISEASE [None]
